FAERS Safety Report 7827209-9 (Version None)
Quarter: 2011Q4

REPORT INFORMATION
  Report Type: 
  Country: None (occurrence: None)
  Receive Date: 20111020
  Receipt Date: 20111011
  Transmission Date: 20120403
  Serious: Yes (Other)
  Sender: FDA-Public Use
  Company Number: US-MYLANLABS-2011S1021331

PATIENT
  Sex: Female

DRUGS (1)
  1. AMNESTEEM [Suspect]

REACTIONS (2)
  - HYPOAESTHESIA [None]
  - FACIAL PARESIS [None]
